FAERS Safety Report 4756195-3 (Version None)
Quarter: 2005Q3

REPORT INFORMATION
  Report Type: 
  Country: None (occurrence: None)
  Receive Date: 20050830
  Receipt Date: 20050503
  Transmission Date: 20060218
  Serious: No
  Sender: FDA-Public Use
  Company Number: US-GLAXOSMITHKLINE-A0557096A

PATIENT
  Age: 71 Year
  Sex: Male

DRUGS (2)
  1. WELLBUTRIN XL [Suspect]
     Dosage: 300MG PER DAY
     Route: 048
     Dates: start: 20050201, end: 20050101
  2. LISINOPRIL [Concomitant]

REACTIONS (2)
  - ERECTILE DYSFUNCTION [None]
  - EX-SMOKER [None]
